FAERS Safety Report 8214034-2 (Version None)
Quarter: 2012Q1

REPORT INFORMATION
  Report Type: 
  Country: None (occurrence: None)
  Receive Date: 20120314
  Receipt Date: 20120314
  Transmission Date: 20120608
  Serious: Yes (Other)
  Sender: FDA-Public Use
  Company Number: None

PATIENT
  Age: 54 Year
  Sex: Male
  Weight: 124.7392 kg

DRUGS (3)
  1. PEGASYS [Suspect]
     Indication: HEPATITIS C
     Dosage: PEGASYS 180MCG QW SQ
     Route: 058
     Dates: start: 20120125, end: 20120306
  2. VICTRELIS [Suspect]
     Dosage: VICTRELIS 800MG PO TID
     Route: 048
     Dates: start: 20120115
  3. RIBASPHERE [Suspect]
     Dosage: RIBASPHERE 200M BID PO
     Route: 048

REACTIONS (1)
  - PLATELET COUNT DECREASED [None]
